FAERS Safety Report 17408278 (Version 1)
Quarter: 2020Q1

REPORT INFORMATION
  Report Type: Spontaneous
  Country: US (occurrence: US)
  Receive Date: 20200212
  Receipt Date: 20200212
  Transmission Date: 20200409
  Serious: No
  Sender: FDA-Public Use
  Company Number: US-PURDUE-USA-2019-0149343

PATIENT
  Sex: Female

DRUGS (3)
  1. BUTRANS [Suspect]
     Active Substance: BUPRENORPHINE
     Indication: COMPLEX REGIONAL PAIN SYNDROME
     Dosage: UNK UNK, WEEKLY
     Route: 062
  2. BUTRANS [Suspect]
     Active Substance: BUPRENORPHINE
     Indication: FIBROMYALGIA
     Dosage: 20 MCG/HR, WEEKLY
     Route: 062
  3. BUTRANS [Suspect]
     Active Substance: BUPRENORPHINE
     Indication: PAIN
     Dosage: 15 MCG/HR, WEEKLY
     Route: 062
     Dates: start: 2015

REACTIONS (3)
  - Off label use [Unknown]
  - Product administered at inappropriate site [Unknown]
  - Pain [Unknown]
